FAERS Safety Report 5228747-8 (Version None)
Quarter: 2007Q1

REPORT INFORMATION
  Report Type: 
  Country: None (occurrence: None)
  Receive Date: 20070131
  Receipt Date: 20070117
  Transmission Date: 20070707
  Serious: Yes (Death, Hospitalization)
  Sender: FDA-Public Use
  Company Number: 234328

PATIENT
  Age: 69 Year
  Sex: Male

DRUGS (11)
  1. AVASTIN [Suspect]
     Indication: COLORECTAL CANCER
     Dosage: 548 MG, Q3W, INTRAVENOUS
     Route: 042
     Dates: start: 20061109
  2. CAPECITABINE(CAPECITABINE) [Suspect]
     Indication: COLORECTAL CANCER
     Dosage: 3600 MG, BID, ORAL
     Route: 048
     Dates: start: 20061109
  3. OXALIPLATIN [Suspect]
     Indication: COLORECTAL CANCER
     Dosage: 240 MG, Q3W, INTRAVENOUS
     Route: 042
     Dates: start: 20061109
  4. OMEPRAZOLE [Concomitant]
  5. MEDICATION (UNK INGREDIENT) (GENERIC COMPONENT (S) NOT KNOWN) [Concomitant]
  6. ACETAMINOPHEN [Concomitant]
  7. OXAZEPAM [Concomitant]
  8. AUGMENTIN '250' [Concomitant]
  9. POTASSIUM CHLORIDE [Concomitant]
  10. GENTAMICIN [Concomitant]
  11. XELODA [Concomitant]

REACTIONS (6)
  - AORTIC ANEURYSM RUPTURE [None]
  - CONSTIPATION [None]
  - GASTRIC DISORDER [None]
  - HAEMOGLOBIN DECREASED [None]
  - HYPOTENSION [None]
  - SHOCK [None]
